FAERS Safety Report 6559176-2 (Version None)
Quarter: 2010Q1

REPORT INFORMATION
  Report Type: 
  Country: None (occurrence: None)
  Receive Date: 20100129
  Receipt Date: 20091002
  Transmission Date: 20100710
  Serious: No
  Sender: FDA-Public Use
  Company Number: PR-ABBOTT-09P-131-0600590-00

PATIENT
  Sex: Female
  Weight: 89.892 kg

DRUGS (1)
  1. HUMIRA [Suspect]
     Indication: RHEUMATOID ARTHRITIS
     Route: 058

REACTIONS (3)
  - INJURY ASSOCIATED WITH DEVICE [None]
  - OEDEMA PERIPHERAL [None]
  - WRONG DRUG ADMINISTERED [None]
